FAERS Safety Report 7219547-8 (Version None)
Quarter: 2011Q1

REPORT INFORMATION
  Report Type: 
  Country: None (occurrence: None)
  Receive Date: 20110111
  Receipt Date: 20110104
  Transmission Date: 20110831
  Serious: Yes (Hospitalization)
  Sender: FDA-Public Use
  Company Number: US-JNJFOC-20110100818

PATIENT
  Sex: Female
  Weight: 45.36 kg

DRUGS (5)
  1. DURAGESIC-50 [Suspect]
     Dosage: NDC NUMBER 50458-0093-05
     Route: 062
  2. UNSPECIFIED FENTANYL [Suspect]
     Indication: BACK PAIN
     Route: 062
  3. XANAX [Concomitant]
     Indication: ANXIETY
     Route: 048
  4. DURAGESIC-50 [Suspect]
     Indication: BACK PAIN
     Route: 062
  5. DURAGESIC-50 [Suspect]
     Route: 062

REACTIONS (11)
  - DRUG ADMINISTERED AT INAPPROPRIATE SITE [None]
  - DRUG EFFECT DECREASED [None]
  - THERAPEUTIC RESPONSE DECREASED [None]
  - WRONG TECHNIQUE IN DRUG USAGE PROCESS [None]
  - WITHDRAWAL SYNDROME [None]
  - INSOMNIA [None]
  - PRODUCT ADHESION ISSUE [None]
  - BREAKTHROUGH PAIN [None]
  - SURGERY [None]
  - TREATMENT NONCOMPLIANCE [None]
  - BACK PAIN [None]
